FAERS Safety Report 9524413 (Version 1)
Quarter: 2013Q3

REPORT INFORMATION
  Report Type: Spontaneous
  Country: US (occurrence: None)
  Receive Date: 20130912
  Receipt Date: 20130912
  Transmission Date: 20140515
  Serious: Yes (Hospitalization, Disabling, Other)
  Sender: FDA-Public Use
  Company Number: None

PATIENT
  Age: 52 Year
  Sex: Male

DRUGS (11)
  1. RISPERIDONE [Suspect]
     Indication: TACHYPHRENIA
     Dosage: 1 AT BEDTIME
     Route: 048
     Dates: start: 20130404, end: 20130717
  2. DEPEKOTE 2500MG [Concomitant]
  3. MOVIDTARILY [Concomitant]
  4. SIMVASTATIN [Concomitant]
  5. TERAZOSIN [Concomitant]
  6. TRIFLUOPEREZINE [Concomitant]
  7. LEVOTHYROXINE [Concomitant]
  8. FISH OIL [Concomitant]
  9. IBUPROFEN [Concomitant]
  10. PERCAPTON [Concomitant]
  11. VITAMINS [Concomitant]

REACTIONS (5)
  - Convulsion [None]
  - Anxiety [None]
  - Respiratory arrest [None]
  - Impaired driving ability [None]
  - Economic problem [None]
